FAERS Safety Report 18284623 (Version 6)
Quarter: 2021Q1

REPORT INFORMATION
  Report Type: Spontaneous
  Country: GB (occurrence: GB)
  Receive Date: 20200919
  Receipt Date: 20210324
  Transmission Date: 20210419
  Serious: Yes (Other)
  Sender: FDA-Public Use
  Company Number: GB-AUROBINDO-AUR-APL-2020-003217

PATIENT
  Age: 57 Year
  Sex: Female

DRUGS (86)
  1. EXEMESTANE. [Suspect]
     Active Substance: EXEMESTANE
     Dosage: 25 MILLIGRAM, ONCE A DAY, 25 MG, QD (1/DAY)
     Route: 048
     Dates: start: 20151021
  2. CAPECITABINE. [Suspect]
     Active Substance: CAPECITABINE
     Indication: BREAST CANCER
     Dosage: 3300 MILLIGRAM
     Route: 048
     Dates: start: 20160901, end: 20160914
  3. NAVELBINE [Suspect]
     Active Substance: VINORELBINE TARTRATE
     Indication: BREAST CANCER
     Dosage: 100 MILLIGRAM
     Route: 048
     Dates: start: 20160901, end: 20160930
  4. TRASTUZUMAB. [Suspect]
     Active Substance: TRASTUZUMAB
     Indication: BREAST CANCER
     Dosage: 462 MILLIGRAM, LOADING DOSE
     Route: 042
     Dates: start: 20150506, end: 20150506
  5. TRASTUZUMAB EMTANSINE [Suspect]
     Active Substance: ADO-TRASTUZUMAB EMTANSINE
     Indication: BREAST CANCER
     Dosage: 224 MILLIGRAM, EVERY 3 WEEKS
     Route: 042
     Dates: start: 20170620, end: 20170830
  6. VINORELBINE TARTRATE. [Suspect]
     Active Substance: VINORELBINE TARTRATE
     Indication: BREAST CANCER
     Dosage: 100 MILLIGRAM
     Route: 048
     Dates: start: 20160901, end: 20160930
  7. ANASTROZOLE. [Concomitant]
     Active Substance: ANASTROZOLE
     Indication: PRODUCT USED FOR UNKNOWN INDICATION
  8. BECLOMETASONE [Concomitant]
     Active Substance: BECLOMETHASONE DIPROPIONATE
     Indication: WHEEZING
     Dosage: UNK
     Route: 050
     Dates: end: 20160108
  9. CODEINE [Concomitant]
     Active Substance: CODEINE
     Dosage: UNK
     Route: 048
     Dates: start: 20150603, end: 20150715
  10. DEXAMETHASONE. [Concomitant]
     Active Substance: DEXAMETHASONE
     Indication: PREMEDICATION
     Dosage: 2 MILLIGRAM
     Route: 048
     Dates: start: 20150504, end: 20150904
  11. IBUPROFEN. [Concomitant]
     Active Substance: IBUPROFEN
     Indication: HEADACHE
     Dosage: 1 DOSAGE FORM, ONCE A DAY
     Route: 048
     Dates: start: 20170201
  12. KEPPRA [Concomitant]
     Active Substance: LEVETIRACETAM
     Indication: MUSCLE TWITCHING
     Dosage: 1 DOSAGE FORM, TWO TIMES A DAY
     Route: 048
     Dates: start: 20160811, end: 20161027
  13. LACTULOSE. [Concomitant]
     Active Substance: LACTULOSE
     Indication: CONSTIPATION
     Dosage: UNK
     Route: 048
     Dates: start: 201603, end: 20171021
  14. LEVETIRACETAM. [Concomitant]
     Active Substance: LEVETIRACETAM
     Dosage: UNK
     Route: 048
     Dates: start: 20160811, end: 20161027
  15. METOCLOPRAMIDE. [Concomitant]
     Active Substance: METOCLOPRAMIDE
     Indication: PRODUCT USED FOR UNKNOWN INDICATION
     Dosage: UNK UNK, TWO TIMES A DAY
     Route: 042
     Dates: start: 20150506, end: 20150903
  16. METOCLOPRAMIDE. [Concomitant]
     Active Substance: METOCLOPRAMIDE
     Dosage: SUBSEQUENT DOSE RECEIVED ON 18/NOV/2016
     Route: 048
     Dates: start: 20150506, end: 2016
  17. PARACETAMOL [Concomitant]
     Active Substance: ACETAMINOPHEN
     Indication: HEADACHE
     Dosage: UNK
     Route: 048
     Dates: start: 20160629, end: 20171027
  18. RAMIPRIL. [Concomitant]
     Active Substance: RAMIPRIL
     Indication: PALPITATIONS
     Dosage: 5 MILLIGRAM, ONCE A DAY
     Route: 048
     Dates: start: 20160308, end: 20161005
  19. ANASTROZOLE FILM COATED TABLETS [Suspect]
     Active Substance: ANASTROZOLE
     Indication: BREAST CANCER
     Dosage: 1 MILLIGRAM, ONCE A DAY
     Route: 048
     Dates: start: 20151021
  20. TAXOTERE [Suspect]
     Active Substance: DOCETAXEL
     Indication: BREAST CANCER
     Dosage: 130 MILLIGRAM, EVERY 3 WEEKS
     Route: 042
     Dates: start: 20150507, end: 20150903
  21. TRASTUZUMAB. [Suspect]
     Active Substance: TRASTUZUMAB
     Indication: BREAST CANCER
     Dosage: 357 MILLIGRAM, FOR 3 WEEKS
     Route: 042
     Dates: start: 20150527
  22. VINORELBINE TARTRATE. [Suspect]
     Active Substance: VINORELBINE TARTRATE
     Dosage: 100 MILLIGRAM
     Route: 048
     Dates: start: 20161028, end: 20161028
  23. ANASTROZOLE. [Concomitant]
     Active Substance: ANASTROZOLE
     Indication: PRODUCT USED FOR UNKNOWN INDICATION
     Dosage: 1 MG, QD (1/DAY)
     Route: 048
     Dates: start: 20151021
  24. BECLOMETASONE [Concomitant]
     Active Substance: BECLOMETHASONE DIPROPIONATE
     Indication: WHEEZING
  25. ONDANSETRON [Concomitant]
     Active Substance: ONDANSETRON
     Dosage: UNK
     Route: 048
     Dates: start: 20161111, end: 2016
  26. PEGFILGRASTIM [Concomitant]
     Active Substance: PEGFILGRASTIM
     Indication: PRODUCT USED FOR UNKNOWN INDICATION
     Dosage: UNK
     Route: 058
     Dates: start: 20150506, end: 20150903
  27. VENTOLIN [Concomitant]
     Active Substance: ALBUTEROL SULFATE
     Indication: WHEEZING
     Dosage: UNK
     Route: 065
     Dates: start: 20170621, end: 2017
  28. CAPECITABINE. [Suspect]
     Active Substance: CAPECITABINE
     Indication: BREAST CANCER
     Dosage: 1650 MILLIGRAM
     Route: 048
     Dates: start: 20160901, end: 20160914
  29. TRASTUZUMAB EMTANSINE [Suspect]
     Active Substance: ADO-TRASTUZUMAB EMTANSINE
     Indication: BREAST CANCER
     Dosage: 462 MILLIGRAM,3 WEEK
     Route: 042
     Dates: start: 20150506
  30. CODEINE [Concomitant]
     Active Substance: CODEINE
     Indication: DIARRHOEA
     Dosage: UNK
     Route: 048
     Dates: end: 2015
  31. DEXAMETHASONE. [Concomitant]
     Active Substance: DEXAMETHASONE
     Dosage: 1 DOSAGE FORM, ONCE A DAY
     Route: 048
     Dates: start: 20161130, end: 20161201
  32. DEXAMETHASONE. [Concomitant]
     Active Substance: DEXAMETHASONE
     Dosage: 2 MILLIGRAM, 1 DF, QD (1/DAY)
     Route: 048
     Dates: start: 20161004, end: 20161123
  33. DEXAMETHASONE. [Concomitant]
     Active Substance: DEXAMETHASONE
     Dosage: 1 DOSAGE FORM, ONCE A DAY
     Route: 048
     Dates: start: 20161123, end: 20161130
  34. LEVETIRACETAM. [Concomitant]
     Active Substance: LEVETIRACETAM
     Indication: EPILEPSY
     Dosage: 250 MILLIGRAM
     Route: 048
     Dates: start: 20160727, end: 20171027
  35. METOCLOPRAMIDE. [Concomitant]
     Active Substance: METOCLOPRAMIDE
     Dosage: UNK
     Route: 048
     Dates: start: 20170815
  36. QUININE SULFATE. [Concomitant]
     Active Substance: QUININE SULFATE
     Indication: MUSCLE SPASMS
     Dosage: 200 MILLIGRAM
     Route: 048
     Dates: start: 20161123, end: 20171027
  37. EXEMESTANE. [Suspect]
     Active Substance: EXEMESTANE
     Indication: BREAST CANCER
     Dosage: 25 MILLIGRAM, ONCE A DAY
     Route: 048
     Dates: start: 20090921
  38. EXEMESTANE. [Suspect]
     Active Substance: EXEMESTANE
     Indication: BREAST CANCER
     Dosage: 25 MILLIGRAM, ONCE A DAY, 25 MG, QD (1/DAY)
     Route: 048
     Dates: start: 20150328
  39. PERTUZUMAB. [Suspect]
     Active Substance: PERTUZUMAB
     Indication: BREAST CANCER
     Dosage: 420 MILLIGRAM, EVERY 3 WEEKS
     Route: 042
     Dates: start: 20150527, end: 20160630
  40. TAXOTERE [Suspect]
     Active Substance: DOCETAXEL
     Indication: BREAST CANCER
     Dosage: 130 MILLIGRAM
     Route: 042
     Dates: start: 20150903
  41. ACCRETE D3 [Concomitant]
     Active Substance: CALCIUM CARBONATE\CHOLECALCIFEROL
     Indication: PRODUCT USED FOR UNKNOWN INDICATION
     Dosage: UNK
     Route: 048
     Dates: end: 20171027
  42. DEXAMETHASONE. [Concomitant]
     Active Substance: DEXAMETHASONE
     Dosage: 1 DOSAGE FORM, ONCE A DAY, 1 DF, QD (1/DAY)
     Route: 048
     Dates: start: 20150506, end: 20150717
  43. DEXAMETHASONE. [Concomitant]
     Active Substance: DEXAMETHASONE
     Dosage: 1 DOSAGE FORM, ONCE A DAY
     Route: 048
     Dates: start: 201612, end: 201612
  44. KEPPRA [Concomitant]
     Active Substance: LEVETIRACETAM
     Indication: MUSCLE TWITCHING
     Dosage: 1 DOSAGE FORM, TWO TIMES A DAY
     Route: 048
     Dates: start: 20160727, end: 20160810
  45. LACTULOSE. [Concomitant]
     Active Substance: LACTULOSE
     Indication: NEURALGIA
     Dosage: UNK
     Route: 048
     Dates: start: 20170201, end: 201703
  46. LOSARTAN. [Concomitant]
     Active Substance: LOSARTAN
     Indication: PALPITATIONS
     Dosage: 50 MILLIGRAM
     Route: 048
     Dates: start: 20160602, end: 20171027
  47. METOCLOPRAMIDE. [Concomitant]
     Active Substance: METOCLOPRAMIDE
     Dosage: 2 DOSAGE FORM, ONCE A DAY
     Route: 048
     Dates: start: 20170815, end: 2017
  48. ONDANSETRON [Concomitant]
     Active Substance: ONDANSETRON
     Indication: PRODUCT USED FOR UNKNOWN INDICATION
     Dosage: UNK
     Route: 048
     Dates: start: 20150508, end: 20150904
  49. CASSIA ANGUSTIFOLIA [Concomitant]
     Active Substance: HERBALS\SENNOSIDES
     Indication: CONSTIPATION
     Dosage: UNK
     Route: 048
  50. TAXOTERE [Suspect]
     Active Substance: DOCETAXEL
     Indication: BREAST CANCER
     Dosage: UNK
     Route: 048
     Dates: start: 20160901
  51. TRASTUZUMAB EMTANSINE [Suspect]
     Active Substance: ADO-TRASTUZUMAB EMTANSINE
     Indication: PRODUCT USED FOR UNKNOWN INDICATION
     Dosage: 357 MILLIGRAM,3 WEEK
     Route: 042
     Dates: start: 20150527
  52. VINORELBINE TARTRATE. [Suspect]
     Active Substance: VINORELBINE TARTRATE
     Dosage: 100 MILLIGRAM, ONCE A DAY, 100 MG, QD (1/DAY)
     Route: 048
     Dates: start: 20161111
  53. BISOPROLOL [Concomitant]
     Active Substance: BISOPROLOL
     Indication: PALPITATIONS
     Dosage: UNK
     Route: 065
     Dates: start: 20160602, end: 20171027
  54. DEXAMETHASONE. [Concomitant]
     Active Substance: DEXAMETHASONE
     Dosage: 1 DOSAGE FORM, ONCE A DAY
     Route: 048
     Dates: start: 201612, end: 20170510
  55. PERTUZUMAB. [Suspect]
     Active Substance: PERTUZUMAB
     Dosage: 840 MILLIGRAM, LOADING DOSE
     Route: 042
     Dates: start: 20150507, end: 20150507
  56. PERTUZUMAB. [Suspect]
     Active Substance: PERTUZUMAB
     Dosage: 420 MILLIGRAM,3 WEEK
     Route: 042
     Dates: start: 20150527
  57. TRASTUZUMAB. [Suspect]
     Active Substance: TRASTUZUMAB
     Indication: BREAST CANCER
     Dosage: 357 MILLIGRAM, EVERY 3 WEEKS
     Route: 042
     Dates: start: 20150527, end: 20160630
  58. AMOXICILLIN. [Concomitant]
     Active Substance: AMOXICILLIN
     Indication: OROPHARYNGEAL PAIN
     Dosage: 3 DOSAGE FORM, 3 TIMES A DAY, (3 DF,  TID (3/DAY))
     Route: 048
     Dates: start: 20151104, end: 20151111
  59. CALCIUM GLUCONATE. [Concomitant]
     Active Substance: CALCIUM GLUCONATE
     Indication: PRODUCT USED FOR UNKNOWN INDICATION
     Dosage: UNK
     Route: 065
     Dates: end: 20170201
  60. COCODAMOL [Concomitant]
     Active Substance: ACETAMINOPHEN\CODEINE PHOSPHATE
     Indication: HEADACHE
     Dosage: UNK
     Route: 048
     Dates: start: 20160929, end: 20171027
  61. DEXAMETHASONE. [Concomitant]
     Active Substance: DEXAMETHASONE
     Dosage: 1 DOSAGE FORM, ONCE A DAY
     Route: 048
     Dates: start: 201607, end: 20160921
  62. DEXAMETHASONE. [Concomitant]
     Active Substance: DEXAMETHASONE
     Dosage: 2 MILLIGRAM
     Route: 065
     Dates: start: 20160713, end: 20161004
  63. DEXAMETHASONE. [Concomitant]
     Active Substance: DEXAMETHASONE
     Dosage: 2 MILLIGRAM
     Route: 065
     Dates: start: 20161014
  64. FLUCONAZOLE. [Concomitant]
     Active Substance: FLUCONAZOLE
     Indication: PRODUCT USED FOR UNKNOWN INDICATION
     Dosage: UNK
     Route: 048
     Dates: start: 20171004, end: 20171004
  65. LANSOPRAZOLE. [Concomitant]
     Active Substance: LANSOPRAZOLE
     Indication: PROPHYLAXIS
  66. LOSARTAN. [Concomitant]
     Active Substance: LOSARTAN
     Indication: PALPITATIONS
  67. NITROFURANTOIN. [Concomitant]
     Active Substance: NITROFURANTOIN
     Indication: PRODUCT USED FOR UNKNOWN INDICATION
     Dosage: UNK
     Route: 065
     Dates: start: 20170621, end: 20170623
  68. QUININE SULFATE. [Concomitant]
     Active Substance: QUININE SULFATE
     Indication: MUSCLE SPASMS
  69. SENNA [Concomitant]
     Active Substance: SENNA LEAF\SENNOSIDES\SENNOSIDES A AND B
     Indication: CONSTIPATION
     Dosage: UNK
     Route: 048
     Dates: start: 20161221, end: 20170327
  70. AMOXICILLIN. [Concomitant]
     Active Substance: AMOXICILLIN
     Indication: OROPHARYNGEAL PAIN
  71. DEXAMETHASONE. [Concomitant]
     Active Substance: DEXAMETHASONE
     Dosage: UNK
     Route: 048
     Dates: start: 20160713, end: 201607
  72. DEXAMETHASONE. [Concomitant]
     Active Substance: DEXAMETHASONE
     Dosage: 1 DOSAGE FORM, ONCE A DAY
     Route: 048
     Dates: start: 20170216
  73. LANSOPRAZOLE. [Concomitant]
     Active Substance: LANSOPRAZOLE
     Indication: PROPHYLAXIS
     Dosage: UNK
     Route: 048
     Dates: start: 20150504, end: 20171027
  74. LEVETIRACETAM. [Concomitant]
     Active Substance: LEVETIRACETAM
     Dosage: UNK UNK, TWO TIMES A DAY, BID (2/DAY)
     Route: 048
     Dates: start: 20160727, end: 20160810
  75. METOCLOPRAMIDE. [Concomitant]
     Active Substance: METOCLOPRAMIDE
     Dosage: 1 DOSAGE FORM, TWO TIMES A DAY, SUBSEQUENT DOSE RECEIVED18/NOV/2016
     Route: 048
     Dates: start: 20170301, end: 2017
  76. METOCLOPRAMIDE. [Concomitant]
     Active Substance: METOCLOPRAMIDE
     Dosage: UNK
     Route: 048
     Dates: start: 20161118
  77. RAMIPRIL. [Concomitant]
     Active Substance: RAMIPRIL
     Indication: COUGH
     Dosage: UNK
     Route: 065
  78. RAMIPRIL. [Concomitant]
     Active Substance: RAMIPRIL
     Indication: PALPITATIONS
     Dosage: 5 MILLIGRAM, ONCE A DAY
     Route: 048
     Dates: start: 20160308, end: 20160602
  79. SPIRONOLACTONE. [Concomitant]
     Active Substance: SPIRONOLACTONE
     Indication: PALPITATIONS
     Dosage: UNK
     Route: 048
     Dates: start: 20160602, end: 20171027
  80. TRIMETHOPRIM. [Concomitant]
     Active Substance: TRIMETHOPRIM
     Indication: URINARY TRACT INFECTION
     Dosage: UNK
     Route: 048
     Dates: start: 20170209, end: 20170216
  81. APREPITANT. [Concomitant]
     Active Substance: APREPITANT
     Indication: PROPHYLAXIS
     Dosage: UNK
     Route: 065
     Dates: start: 20150527, end: 20150905
  82. CYCLIZINE [Concomitant]
     Active Substance: CYCLIZINE
     Indication: PROPHYLAXIS
     Dosage: 150 MILLIGRAM, ONCE A DAY(QD (1/DAY)
     Route: 048
     Dates: start: 20150603, end: 20150715
  83. PERTUZUMAB. [Suspect]
     Active Substance: PERTUZUMAB
     Indication: BREAST CANCER
     Dosage: 2520  MILLIGRAM, LOADING DOSE
     Route: 042
     Dates: start: 20150507
  84. CODEINE [Concomitant]
     Active Substance: CODEINE
     Dosage: UNK
     Route: 048
     Dates: start: 20150603, end: 2015
  85. DEXAMETHASONE. [Concomitant]
     Active Substance: DEXAMETHASONE
     Dosage: UNK
     Route: 048
     Dates: start: 20170216, end: 20170830
  86. LACTULOSE. [Concomitant]
     Active Substance: LACTULOSE
     Dosage: UNK
     Route: 048
     Dates: start: 20161221, end: 20171021

REACTIONS (18)
  - Nail infection [Recovered/Resolved]
  - Mucosal inflammation [Unknown]
  - Fatigue [Unknown]
  - Palpitations [Not Recovered/Not Resolved]
  - Headache [Recovered/Resolved]
  - Neuralgia [Not Recovered/Not Resolved]
  - Neuropathy peripheral [Not Recovered/Not Resolved]
  - Abdominal pain [Unknown]
  - Diarrhoea [Recovered/Resolved]
  - Lacrimation increased [Not Recovered/Not Resolved]
  - Left ventricular dysfunction [Not Recovered/Not Resolved]
  - Depressed mood [Not Recovered/Not Resolved]
  - Poor peripheral circulation [Unknown]
  - Alopecia [Unknown]
  - Nasopharyngitis [Recovered/Resolved]
  - Seizure [Unknown]
  - Nausea [Recovered/Resolved]
  - Rash [Recovered/Resolved]

NARRATIVE: CASE EVENT DATE: 20150327
